FAERS Safety Report 15273417 (Version 1)
Quarter: 2018Q3

REPORT INFORMATION
  Report Type: Spontaneous
  Country: ES (occurrence: ES)
  Receive Date: 20180813
  Receipt Date: 20180813
  Transmission Date: 20181010
  Serious: Yes (Other)
  Sender: FDA-Public Use
  Company Number: ES-009507513-1808ESP002699

PATIENT
  Age: 45 Year
  Sex: Male

DRUGS (2)
  1. PROSCAR [Suspect]
     Active Substance: FINASTERIDE
     Indication: ALOPECIA
     Dosage: 5 MG, QOD
     Route: 048
     Dates: start: 20180713, end: 20180803
  2. PROPECIA [Suspect]
     Active Substance: FINASTERIDE
     Indication: ALOPECIA
     Dosage: 1 MG, QOD
     Route: 048
     Dates: start: 201802, end: 20180712

REACTIONS (7)
  - Dyspepsia [Unknown]
  - Drug prescribing error [Unknown]
  - Product use in unapproved indication [Unknown]
  - Product use issue [Unknown]
  - Wrong dose [Unknown]
  - Wrong technique in product usage process [Unknown]
  - Helicobacter infection [Unknown]

NARRATIVE: CASE EVENT DATE: 2018
